FAERS Safety Report 8780731 (Version 1)
Quarter: 2012Q4

REPORT INFORMATION
  Report Type: 
  Country: US (occurrence: US)
  Receive Date: 20120913
  Receipt Date: 20120913
  Transmission Date: 20130627
  Serious: No
  Sender: FDA-Public Use
  Company Number: US-PFIZER INC-2012224970

PATIENT
  Age: 68 Year
  Sex: Female
  Weight: 113.38 kg

DRUGS (4)
  1. NEURONTIN [Suspect]
     Indication: NEURALGIA
     Dosage: 300 mg, 1x/day
     Dates: start: 2008, end: 2010
  2. REMERON [Concomitant]
     Indication: DEPRESSION
     Dosage: UNK
  3. PERCOCET [Concomitant]
     Indication: PAIN
     Dosage: UNK
  4. KLONOPIN [Concomitant]
     Dosage: 0.5 mg, UNK

REACTIONS (2)
  - Drug tolerance [Unknown]
  - Drug ineffective [Unknown]
